FAERS Safety Report 9404421 (Version 1)
Quarter: 2013Q3

REPORT INFORMATION
  Report Type: Spontaneous
  Country: US (occurrence: US)
  Receive Date: 20130717
  Receipt Date: 20130717
  Transmission Date: 20140515
  Serious: No
  Sender: FDA-Public Use
  Company Number: US-PFIZER INC-2013206399

PATIENT
  Age: 66 Year
  Sex: Female

DRUGS (2)
  1. LEVOXYL [Suspect]
     Dosage: UNK
  2. LEVOXYL [Suspect]
     Dosage: UNK

REACTIONS (2)
  - Heart rate irregular [Unknown]
  - Drug effect decreased [Unknown]
